FAERS Safety Report 22144947 (Version 4)
Quarter: 2023Q2

REPORT INFORMATION
  Report Type: Report from Study
  Country: US (occurrence: US)
  Receive Date: 20230328
  Receipt Date: 20230615
  Transmission Date: 20230722
  Serious: No
  Sender: FDA-Public Use
  Company Number: US-002147023-NVSC2023US067411

PATIENT
  Sex: Female

DRUGS (2)
  1. LEQVIO [Suspect]
     Active Substance: INCLISIRAN SODIUM
     Indication: Product used for unknown indication
     Dosage: UNK
     Route: 058
     Dates: start: 20230306
  2. LEQVIO [Suspect]
     Active Substance: INCLISIRAN SODIUM
     Dosage: UNK
     Route: 058
     Dates: start: 202303

REACTIONS (7)
  - Abdominal discomfort [Unknown]
  - Abdominal distension [Unknown]
  - Myalgia [Unknown]
  - Diarrhoea [Unknown]
  - Pain in extremity [Unknown]
  - Depression [Unknown]
  - Arthralgia [Unknown]
